FAERS Safety Report 18097153 (Version 1)
Quarter: 2020Q3

REPORT INFORMATION
  Report Type: Spontaneous
  Country: CA (occurrence: CA)
  Receive Date: 20200730
  Receipt Date: 20200730
  Transmission Date: 20201103
  Serious: Yes (Life-Threatening, Hospitalization, Other)
  Sender: FDA-Public Use
  Company Number: CA-ACTELION-A-NJ2020-207546

PATIENT
  Age: 16 Year
  Sex: Female
  Weight: 48 kg

DRUGS (5)
  1. TADALAFIL. [Suspect]
     Active Substance: TADALAFIL
     Indication: PULMONARY ARTERIAL HYPERTENSION
     Dosage: 40 MG, QD
     Route: 048
  2. CARBAMAZEPINE. [Suspect]
     Active Substance: CARBAMAZEPINE
     Indication: SEIZURE
     Dosage: 300 MG, BID
     Route: 048
  3. CARBAMAZEPINE. [Suspect]
     Active Substance: CARBAMAZEPINE
     Dosage: 400 MG, BID
     Route: 048
  4. UPTRAVI [Suspect]
     Active Substance: SELEXIPAG
     Indication: PULMONARY ARTERIAL HYPERTENSION
     Dosage: 1400 MCG, BID
     Route: 048
  5. VOLIBRIS [Suspect]
     Active Substance: AMBRISENTAN
     Indication: PULMONARY ARTERIAL HYPERTENSION
     Dosage: 10 MG, QD
     Route: 065

REACTIONS (18)
  - Cardiac arrest [Unknown]
  - Dizziness [Unknown]
  - Epistaxis [Unknown]
  - Generalised tonic-clonic seizure [Unknown]
  - Right ventricular dilatation [Unknown]
  - Pyrexia [Unknown]
  - Syncope [Unknown]
  - Systolic dysfunction [Unknown]
  - Kidney infection [Unknown]
  - Loss of consciousness [Unknown]
  - Fatigue [Unknown]
  - Off label use [Unknown]
  - Blood pressure increased [Unknown]
  - Metapneumovirus infection [Unknown]
  - Pneumonia [Unknown]
  - Vomiting [Unknown]
  - Pulse abnormal [Unknown]
  - Rhinorrhoea [Unknown]
